FAERS Safety Report 4830095-2 (Version None)
Quarter: 2005Q4

REPORT INFORMATION
  Report Type: 
  Country: None (occurrence: None)
  Receive Date: 20051117
  Receipt Date: 20051115
  Transmission Date: 20060501
  Serious: Yes (Other)
  Sender: FDA-Public Use
  Company Number: US-GLAXOSMITHKLINE-A0582281A

PATIENT
  Sex: Female

DRUGS (1)
  1. COMMIT [Suspect]
     Route: 002

REACTIONS (2)
  - DRUG ABUSER [None]
  - PITUITARY TUMOUR [None]
